FAERS Safety Report 23769394 (Version 1)
Quarter: 2024Q2

REPORT INFORMATION
  Report Type: Spontaneous
  Country: US (occurrence: None)
  Receive Date: 20240420
  Receipt Date: 20240420
  Transmission Date: 20240716
  Serious: Yes (Life-Threatening, Hospitalization)
  Sender: FDA-Public Use
  Company Number: None

PATIENT
  Age: 41 Year
  Sex: Male
  Weight: 81.3 kg

DRUGS (2)
  1. PAMIDRONATE DISODIUM [Suspect]
     Active Substance: PAMIDRONATE DISODIUM
     Dosage: 500 ML INTRAVENOUS
     Route: 042
     Dates: start: 20240419
  2. CYANOCOBALAMIN\MAMMAL LIVER [Suspect]
     Active Substance: CYANOCOBALAMIN\MAMMAL LIVER

REACTIONS (3)
  - Hypotension [None]
  - Heart rate increased [None]
  - Pyrexia [None]

NARRATIVE: CASE EVENT DATE: 20240401
